FAERS Safety Report 16885792 (Version 1)
Quarter: 2019Q4

REPORT INFORMATION
  Report Type: Report from Study
  Country: US (occurrence: US)
  Receive Date: 20191004
  Receipt Date: 20191004
  Transmission Date: 20200122
  Serious: Yes (Death)
  Sender: FDA-Public Use
  Company Number: US-ACTELION-A-US2018-169799

PATIENT
  Age: 82 Year
  Sex: Male
  Weight: 99.77 kg

DRUGS (4)
  1. ADEMPAS [Concomitant]
     Active Substance: RIOCIGUAT
  2. REVATIO [Concomitant]
     Active Substance: SILDENAFIL CITRATE
  3. COUMADIN [Concomitant]
     Active Substance: WARFARIN SODIUM
  4. VENTAVIS [Suspect]
     Active Substance: ILOPROST
     Indication: PULMONARY HYPERTENSION
     Dosage: 5 MCG, 6 - 9 X^S/DAY
     Route: 055

REACTIONS (4)
  - Tremor [Unknown]
  - Drug ineffective [Unknown]
  - Eye pain [Unknown]
  - Death [Fatal]

NARRATIVE: CASE EVENT DATE: 20190924
